FAERS Safety Report 5976092-5 (Version None)
Quarter: 2008Q4

REPORT INFORMATION
  Report Type: 
  Country: None (occurrence: None)
  Receive Date: 20081202
  Receipt Date: 20081125
  Transmission Date: 20090506
  Serious: Yes (Other)
  Sender: FDA-Public Use
  Company Number: US-GILEAD-2008-0019202

PATIENT
  Sex: Female
  Weight: 63.56 kg

DRUGS (28)
  1. LETAIRIS [Suspect]
     Indication: PULMONARY ARTERIAL HYPERTENSION
     Route: 048
     Dates: start: 20080825
  2. TOPROL-XL [Concomitant]
  3. COREG [Concomitant]
  4. OXYGEN [Concomitant]
  5. TORSEMIDE [Concomitant]
  6. NITROGLYCERIN [Concomitant]
  7. PREDNISONE TAB [Concomitant]
  8. DUONEB [Concomitant]
  9. SPIRIVA [Concomitant]
  10. PHENERGAN HCL [Concomitant]
  11. ADVAIR HFA [Concomitant]
  12. ASACOL [Concomitant]
  13. NEXIUM [Concomitant]
  14. XANAX [Concomitant]
  15. TRAZODONE HCL [Concomitant]
  16. SEROQUEL [Concomitant]
  17. ALLOPURINOL [Concomitant]
  18. LEXAPRO [Concomitant]
  19. DURAGESIC-100 [Concomitant]
  20. TYLENOL (CAPLET) [Concomitant]
  21. TUSSIONEX [Concomitant]
  22. ACTONEL [Concomitant]
  23. OSCAL [Concomitant]
  24. LORTAB [Concomitant]
  25. POT CL [Concomitant]
  26. FOLIC ACID [Concomitant]
  27. VITAMIN B-12 [Concomitant]
  28. FISH OIL [Concomitant]

REACTIONS (4)
  - CARDIAC FAILURE CONGESTIVE [None]
  - NASAL CONGESTION [None]
  - OEDEMA PERIPHERAL [None]
  - PULMONARY CONGESTION [None]
